FAERS Safety Report 11025470 (Version 1)
Quarter: 2015Q2

REPORT INFORMATION
  Report Type: Spontaneous
  Country: GB (occurrence: None)
  Receive Date: 20150410
  Receipt Date: 20150410
  Transmission Date: 20150821
  Serious: No
  Sender: FDA-Public Use
  Company Number: 2015GR_BP001764

PATIENT
  Age: 60 Year
  Sex: Male
  Weight: 81.64 kg

DRUGS (3)
  1. FINASTERIDE (FINASTERIDE) [Suspect]
     Active Substance: FINASTERIDE
     Indication: PROSTATIC DISORDER
     Dosage: NR
     Route: 048
  2. OMEPRAZOLE. [Concomitant]
     Active Substance: OMEPRAZOLE
  3. EPANUTIN (PHENYTOIN SODIUM PHENYTOIN) [Concomitant]

REACTIONS (2)
  - Depression [None]
  - Anxiety [None]
